FAERS Safety Report 5456836-1 (Version None)
Quarter: 2007Q3

REPORT INFORMATION
  Report Type: 
  Country: None (occurrence: None)
  Receive Date: 20070918
  Receipt Date: 20070228
  Transmission Date: 20080115
  Serious: Yes (Other)
  Sender: FDA-Public Use
  Company Number: US-ASTRAZENECA-2006UW26709

PATIENT
  Age: 15691 Day
  Sex: Male
  Weight: 113.6 kg

DRUGS (10)
  1. SEROQUEL [Suspect]
     Indication: BIPOLAR DISORDER
     Dosage: 100 MG TO 200 MG
     Route: 048
     Dates: start: 20000101
  2. SEROQUEL [Suspect]
     Indication: POST-TRAUMATIC STRESS DISORDER
     Dosage: 100 MG TO 200 MG
     Route: 048
     Dates: start: 20000101
  3. UNSPECIFIED [Concomitant]
  4. ABILIFY [Concomitant]
     Dates: start: 19980101, end: 20010101
  5. RISPERDAL [Concomitant]
     Dates: start: 19980101, end: 20010101
  6. THORAZINE [Concomitant]
     Dates: start: 20000101
  7. ZYPREXA [Concomitant]
     Dosage: 25 TO 500 MG
     Dates: start: 19980101, end: 20010101
  8. DEPAKOTE [Concomitant]
     Dosage: 15 TO 50 MG
     Dates: start: 19980101, end: 20020101
  9. METHADONE HCL [Concomitant]
  10. CRACK-COCAINE [Concomitant]

REACTIONS (8)
  - BLOOD TRIGLYCERIDES INCREASED [None]
  - DIABETIC COMA [None]
  - HYPERLIPIDAEMIA [None]
  - HYPERPROLACTINAEMIA [None]
  - KETOACIDOSIS [None]
  - PANCREATITIS [None]
  - TARDIVE DYSKINESIA [None]
  - TYPE 1 DIABETES MELLITUS [None]
